FAERS Safety Report 7406112-2 (Version None)
Quarter: 2011Q2

REPORT INFORMATION
  Report Type: 
  Country: None (occurrence: None)
  Receive Date: 20110411
  Receipt Date: 20110331
  Transmission Date: 20111010
  Serious: Yes (Hospitalization, Other)
  Sender: FDA-Public Use
  Company Number: FR-SANOFI-AVENTIS-2011SA019700

PATIENT
  Age: 77 Year
  Sex: Male

DRUGS (5)
  1. DILTIAZEM [Suspect]
     Indication: HYPERTENSION
     Route: 048
     Dates: start: 20070109
  2. FLUDEX [Suspect]
     Indication: HYPERTENSION
     Route: 048
     Dates: start: 20070109, end: 20070413
  3. PREVISCAN [Suspect]
     Indication: COR PULMONALE CHRONIC
     Route: 048
     Dates: start: 20070109
  4. VALSARTAN/HYDROCHLOROTHIAZIDE [Suspect]
     Indication: HYPERTENSION
     Route: 048
     Dates: start: 20021201, end: 20070413
  5. SINTROM [Suspect]

REACTIONS (3)
  - TUBULOINTERSTITIAL NEPHRITIS [None]
  - RENAL FAILURE ACUTE [None]
  - RENAL TUBULAR NECROSIS [None]
